FAERS Safety Report 23719127 (Version 1)
Quarter: 2024Q2

REPORT INFORMATION
  Report Type: Spontaneous
  Country: GB (occurrence: GB)
  Receive Date: 20240408
  Receipt Date: 20240408
  Transmission Date: 20240716
  Serious: Yes (Other)
  Sender: FDA-Public Use
  Company Number: None

PATIENT
  Age: 58 Year
  Sex: Female

DRUGS (2)
  1. BUTRANS [Suspect]
     Active Substance: BUPRENORPHINE
     Indication: Pain
     Dosage: 20MG ONE PATCH EACH WEEK; ;
     Route: 065
  2. NEFOPAM [Concomitant]
     Active Substance: NEFOPAM
     Indication: Pain
     Dosage: UNK
     Route: 065

REACTIONS (2)
  - Hot flush [Not Recovered/Not Resolved]
  - Menopause [Not Recovered/Not Resolved]

NARRATIVE: CASE EVENT DATE: 20240402
